FAERS Safety Report 11156603 (Version 1)
Quarter: 2015Q2

REPORT INFORMATION
  Report Type: Spontaneous
  Country: PL (occurrence: PL)
  Receive Date: 20150602
  Receipt Date: 20150602
  Transmission Date: 20150821
  Serious: Yes (Life-Threatening)
  Sender: FDA-Public Use
  Company Number: PL-TEVA-567213ISR

PATIENT
  Sex: Female
  Weight: 66 kg

DRUGS (2)
  1. CISPLATIN. [Suspect]
     Active Substance: CISPLATIN
     Indication: LUNG NEOPLASM MALIGNANT
     Route: 042
     Dates: start: 20130307, end: 20130307
  2. PEMETREXED [Suspect]
     Active Substance: PEMETREXED
     Indication: LUNG NEOPLASM MALIGNANT
     Route: 042
     Dates: start: 20130307, end: 20130307

REACTIONS (4)
  - Neutropenia [Unknown]
  - Dyspnoea [Unknown]
  - Asthenia [Unknown]
  - Leukopenia [Unknown]
